FAERS Safety Report 6763766-1 (Version None)
Quarter: 2010Q2

REPORT INFORMATION
  Report Type: 
  Country: None (occurrence: None)
  Receive Date: 20100609
  Receipt Date: 20100524
  Transmission Date: 20101027
  Serious: Yes (Disabling, Other)
  Sender: FDA-Public Use
  Company Number: HA10-115-AE

PATIENT
  Age: 49 Year
  Sex: Male
  Weight: 77.1115 kg

DRUGS (5)
  1. LORTAB [Suspect]
     Indication: BACK PAIN
     Dates: start: 20090101
  2. PEG-INTRON [Suspect]
     Indication: HEPATITIS C
     Dates: start: 20040101
  3. PEG-INTRON [Suspect]
     Indication: HEPATITIS C
     Dates: start: 20050101
  4. REBETOL [Suspect]
     Dates: start: 20040101
  5. REBETOL [Suspect]
     Dates: start: 20050101

REACTIONS (14)
  - AMMONIA INCREASED [None]
  - ANAEMIA [None]
  - BACK PAIN [None]
  - CONSTIPATION [None]
  - DEPRESSION [None]
  - DISCOMFORT [None]
  - HEPATIC CIRRHOSIS [None]
  - JOINT SWELLING [None]
  - KNEE OPERATION [None]
  - MEMORY IMPAIRMENT [None]
  - MENISCUS LESION [None]
  - NAUSEA [None]
  - WEIGHT DECREASED [None]
  - WEIGHT INCREASED [None]
